FAERS Safety Report 10265681 (Version 1)
Quarter: 2014Q2

REPORT INFORMATION
  Report Type: Spontaneous
  Country: US (occurrence: None)
  Receive Date: 20140625
  Receipt Date: 20140625
  Transmission Date: 20141212
  Serious: No
  Sender: FDA-Public Use
  Company Number: None

PATIENT
  Age: 73 Year
  Sex: Female
  Weight: 68.04 kg

DRUGS (26)
  1. LYRICA (PREGABALIN) [Suspect]
     Indication: PARTIAL SEIZURES
     Dosage: 75 MG PER CAPSULE, 3 CAPSULES (1 AM, 2 BEDTIME) WORSENED WHEN I WENT FROM 2 TO 3 WORSENEDAFTER 4/25/14
     Route: 048
  2. SUDAFED STOOL SOFTENER [Concomitant]
  3. FEXOFENADINE [Concomitant]
  4. NEXIUM [Concomitant]
  5. XELODA [Concomitant]
  6. FLURAZAPAM [Concomitant]
  7. OPTHALMIC [Concomitant]
  8. FLUOROMETH [Concomitant]
  9. GAS X (SIMASTHACONE) [Concomitant]
  10. GLUCOSAMINE [Concomitant]
  11. FLUROCINONIDE (TOPICAL) [Concomitant]
  12. LEVOTHYROXINE [Concomitant]
  13. CAPECITABINE [Concomitant]
  14. MOUTH WASH [Concomitant]
  15. LIDOCAINE [Concomitant]
  16. MYLANTA [Suspect]
  17. BENADRYL [Concomitant]
  18. ASPIRN [Concomitant]
  19. OMEGA 3 FISH OIL [Concomitant]
  20. ULTRAZYME [Concomitant]
  21. CALCIUM [Concomitant]
  22. VITS. C [Concomitant]
  23. VIT E [Concomitant]
  24. VIT D [Concomitant]
  25. BETACAROTINE [Concomitant]
  26. ACETAMINOPHEN [Concomitant]

REACTIONS (1)
  - Confusional state [None]
